FAERS Safety Report 22056306 (Version 1)
Quarter: 2023Q1

REPORT INFORMATION
  Report Type: Report from Study
  Country: CA (occurrence: CA)
  Receive Date: 20230302
  Receipt Date: 20230302
  Transmission Date: 20230418
  Serious: Yes (Hospitalization, Other)
  Sender: FDA-Public Use
  Company Number: CA-ABBVIE-4155278

PATIENT
  Age: 68 Year
  Sex: Male

DRUGS (1)
  1. HUMIRA [Suspect]
     Active Substance: ADALIMUMAB
     Indication: Ankylosing spondylitis
     Route: 058
     Dates: start: 20160812, end: 202007

REACTIONS (2)
  - Immunosuppression [Not Recovered/Not Resolved]
  - Pneumonia legionella [Not Recovered/Not Resolved]

NARRATIVE: CASE EVENT DATE: 20200728
